FAERS Safety Report 16768220 (Version 1)
Quarter: 2019Q4

REPORT INFORMATION
  Report Type: Spontaneous
  Country: US (occurrence: US)
  Receive Date: 20190903
  Receipt Date: 20190903
  Transmission Date: 20200122
  Serious: Yes (Disabling)
  Sender: FDA-Public Use
  Company Number: None

PATIENT
  Age: 33 Year
  Sex: Male
  Weight: 74.25 kg

DRUGS (1)
  1. FINASTERIDE. [Suspect]
     Active Substance: FINASTERIDE
     Indication: ALOPECIA
     Dosage: ?          QUANTITY:30 TABLET(S);?
     Route: 048
     Dates: start: 20170601, end: 20190301

REACTIONS (7)
  - Insomnia [None]
  - Depression [None]
  - Dysarthria [None]
  - Amnesia [None]
  - Cognitive disorder [None]
  - Poverty of speech [None]
  - Suicidal ideation [None]

NARRATIVE: CASE EVENT DATE: 20190201
